FAERS Safety Report 8264861-0 (Version None)
Quarter: 2012Q2

REPORT INFORMATION
  Report Type: 
  Country: None (occurrence: None)
  Receive Date: 20120406
  Receipt Date: 20120326
  Transmission Date: 20120825
  Serious: Yes (Hospitalization)
  Sender: FDA-Public Use
  Company Number: US-ELI_LILLY_AND_COMPANY-US201203008862

PATIENT
  Age: 24 Year
  Sex: Female

DRUGS (4)
  1. TEGRETOL [Concomitant]
  2. LIPITOR [Concomitant]
  3. KLONOPIN [Concomitant]
  4. CYMBALTA [Suspect]
     Indication: DEPRESSION
     Dosage: UNK, UNKNOWN

REACTIONS (2)
  - HOSPITALISATION [None]
  - HEPATIC ENZYME INCREASED [None]
